FAERS Safety Report 6683306-5 (Version None)
Quarter: 2010Q2

REPORT INFORMATION
  Report Type: 
  Country: None (occurrence: None)
  Receive Date: 20100415
  Receipt Date: 20100407
  Transmission Date: 20101027
  Serious: Yes (Hospitalization)
  Sender: FDA-Public Use
  Company Number: GXKR2010NL03355

PATIENT
  Age: 61 Year
  Sex: Female

DRUGS (3)
  1. OMEPRAZOLE [Suspect]
     Indication: DYSPEPSIA
     Dosage: 40 MG/DAY (SINCE 9 YEARS)
     Route: 065
  2. FUROSEMIDE [Concomitant]
     Dosage: 40 MG/DAY
     Route: 065
  3. SPIRONOLACTONE [Concomitant]
     Dosage: 12.5 MG/DAY
     Route: 065

REACTIONS (6)
  - HYPOCALCAEMIA [None]
  - HYPOKALAEMIA [None]
  - HYPOMAGNESAEMIA [None]
  - HYPOPARATHYROIDISM [None]
  - NAUSEA [None]
  - VOMITING [None]
